FAERS Safety Report 5897440-0 (Version None)
Quarter: 2008Q3

REPORT INFORMATION
  Report Type: 
  Country: None (occurrence: None)
  Receive Date: 20080904
  Receipt Date: 20080208
  Transmission Date: 20090109
  Serious: Yes (Other)
  Sender: FDA-Public Use
  Company Number: 2008BH001015

PATIENT
  Age: 38 Year
  Sex: Female
  Weight: 90.7194 kg

DRUGS (11)
  1. GAMMAGARD S/D [Suspect]
     Indication: IMMUNODEFICIENCY COMMON VARIABLE
     Dosage: IV
     Route: 042
     Dates: start: 20080118, end: 20080118
  2. GAMMAGARD S/D [Suspect]
     Indication: IMMUNODEFICIENCY COMMON VARIABLE
     Dosage: IV
     Route: 042
     Dates: start: 20030101
  3. LOVENOX [Concomitant]
  4. TOPAMAX [Concomitant]
  5. CLONAZEPAM [Concomitant]
  6. PROZAC [Concomitant]
  7. AMITRIPTYLINE HCL [Concomitant]
  8. SYNTHROID [Concomitant]
  9. ADVAIR DISKUS 100/50 [Concomitant]
  10. AMBIEN [Concomitant]
  11. PHENERGAN HCL [Concomitant]

REACTIONS (6)
  - ANAPHYLACTOID REACTION [None]
  - CHEST PAIN [None]
  - CHILLS [None]
  - HEADACHE [None]
  - INJECTION SITE ERYTHEMA [None]
  - PRURITUS [None]
